FAERS Safety Report 4341998-X (Version None)
Quarter: 2004Q1

REPORT INFORMATION
  Report Type: 
  Country: None (occurrence: None)
  Receive Date: 20040329
  Receipt Date: 20040202
  Transmission Date: 20041129
  Serious: No
  Sender: FDA-Public Use
  Company Number: 04P-163-0249222-00

PATIENT
  Age: 75 Year
  Sex: Female

DRUGS (15)
  1. HUMIRA [Suspect]
     Indication: RHEUMATOID ARTHRITIS
     Dosage: 40 MG, 1 IN 2 WK, SUBCUTANEOUS
     Route: 058
     Dates: start: 20040114
  2. IRBESARTAN [Concomitant]
  3. ASPIRIN [Concomitant]
  4. VERAPAMIL HYDROCHLORIDE [Concomitant]
  5. PREDNISONE [Concomitant]
  6. BUMETANIDE [Concomitant]
  7. ISOSORBIDE [Concomitant]
  8. FISH OIL [Concomitant]
  9. CLOPIDOGREL BISULFATE [Concomitant]
  10. GABAPENTIN [Concomitant]
  11. METFORMIN HYDROCHLORIDE [Concomitant]
  12. PRAVASTATIN SODIUM [Concomitant]
  13. RABEPRAZOLE SODIUM [Concomitant]
  14. INSULIN LISPRO [Concomitant]
  15. INSULIN GLARGINE [Concomitant]

REACTIONS (1)
  - PAIN IN EXTREMITY [None]
